FAERS Safety Report 6604102-0 (Version None)
Quarter: 2010Q1

REPORT INFORMATION
  Report Type: 
  Country: None (occurrence: None)
  Receive Date: 20100226
  Receipt Date: 20090521
  Transmission Date: 20100710
  Serious: No
  Sender: FDA-Public Use
  Company Number: A0785597A

PATIENT
  Age: 12 Year
  Sex: Male

DRUGS (4)
  1. LAMICTAL CD [Suspect]
     Indication: BIPOLAR DISORDER
     Dosage: 50MG PER DAY
     Route: 048
     Dates: start: 20090501
  2. ZITHROMAX [Concomitant]
     Dates: start: 20090517
  3. ALEVE (CAPLET) [Concomitant]
  4. MULTI-VITAMINS [Concomitant]

REACTIONS (7)
  - AURICULAR SWELLING [None]
  - HEADACHE [None]
  - INFLUENZA LIKE ILLNESS [None]
  - LYMPHADENOPATHY [None]
  - PAIN [None]
  - PYREXIA [None]
  - RASH [None]
